FAERS Safety Report 25156984 (Version 1)
Quarter: 2025Q2

REPORT INFORMATION
  Report Type: Spontaneous
  Country: US (occurrence: US)
  Receive Date: 20250403
  Receipt Date: 20250403
  Transmission Date: 20250716
  Serious: Yes (Death, Other)
  Sender: ELI LILLY AND CO
  Company Number: US-ELI_LILLY_AND_COMPANY-US202504001298

PATIENT
  Sex: Female

DRUGS (1)
  1. MOUNJARO [Suspect]
     Active Substance: TIRZEPATIDE
     Indication: Type 1 diabetes mellitus
     Route: 065

REACTIONS (7)
  - Cardiac arrest [Fatal]
  - Syncope [Unknown]
  - Loss of consciousness [Unknown]
  - Illness [Unknown]
  - Off label use [Unknown]
  - Gastrointestinal disorder [Unknown]
  - Malaise [Unknown]
